FAERS Safety Report 18735911 (Version 1)
Quarter: 2021Q1

REPORT INFORMATION
  Report Type: Report from Study
  Country: US (occurrence: US)
  Receive Date: 20210113
  Receipt Date: 20210113
  Transmission Date: 20210419
  Serious: Yes (Other)
  Sender: FDA-Public Use
  Company Number: US-MYLANLABS-2021M1001697

PATIENT
  Sex: Female
  Weight: 102 kg

DRUGS (1)
  1. GLATIRAMER ACETATE INJECTION [Suspect]
     Active Substance: GLATIRAMER ACETATE
     Indication: RELAPSING-REMITTING MULTIPLE SCLEROSIS
     Dosage: 20 MILLIGRAM, QD

REACTIONS (5)
  - Drug ineffective [Unknown]
  - Balance disorder [Unknown]
  - Urinary incontinence [Unknown]
  - Anal incontinence [Unknown]
  - Fatigue [Unknown]
